FAERS Safety Report 6311107-6 (Version None)
Quarter: 2009Q3

REPORT INFORMATION
  Report Type: 
  Country: None (occurrence: None)
  Receive Date: 20090817
  Receipt Date: 20090807
  Transmission Date: 20100115
  Serious: Yes (Hospitalization)
  Sender: FDA-Public Use
  Company Number: US-BAYER-200929382NA

PATIENT
  Age: 30 Year
  Sex: Female
  Weight: 82 kg

DRUGS (2)
  1. MIRENA [Suspect]
     Indication: MENSTRUATION IRREGULAR
     Dosage: CONTINUOUS
     Route: 015
     Dates: start: 20090716, end: 20090805
  2. CYMBALTA [Concomitant]

REACTIONS (7)
  - ABDOMINAL PAIN LOWER [None]
  - BACK PAIN [None]
  - CERVICITIS [None]
  - DEHYDRATION [None]
  - HEADACHE [None]
  - NAUSEA [None]
  - WEIGHT INCREASED [None]
